FAERS Safety Report 13278422 (Version 1)
Quarter: 2017Q1

REPORT INFORMATION
  Report Type: Report from Study
  Country: US (occurrence: BR)
  Receive Date: 20170228
  Receipt Date: 20170228
  Transmission Date: 20170428
  Serious: Yes (Disabling, Other)
  Sender: FDA-Public Use
  Company Number: US-SUNOVION-2017SUN000867

PATIENT
  Sex: Female
  Weight: 100 kg

DRUGS (1)
  1. INDACATEROL AND GLYCOPYRROLATE [Suspect]
     Active Substance: GLYCOPYRROLATE\INDACATEROL MALEATE
     Indication: CHRONIC OBSTRUCTIVE PULMONARY DISEASE
     Dosage: UNK
     Route: 065

REACTIONS (12)
  - Stubbornness [Unknown]
  - Anxiety [Unknown]
  - Syncope [Unknown]
  - Increased appetite [Unknown]
  - Loss of consciousness [Unknown]
  - Dyspnoea exertional [Unknown]
  - Somnolence [Unknown]
  - Agitation [Unknown]
  - Hypoacusis [Unknown]
  - Weight increased [Unknown]
  - Peripheral swelling [Unknown]
  - Speech disorder [Unknown]
